FAERS Safety Report 12109004 (Version 1)
Quarter: 2016Q1

REPORT INFORMATION
  Report Type: Spontaneous
  Country: US (occurrence: None)
  Receive Date: 20160222
  Receipt Date: 20160222
  Transmission Date: 20160526
  Serious: Yes (Disabling)
  Sender: FDA-Public Use
  Company Number: None

PATIENT
  Age: 39 Year
  Sex: Female
  Weight: 83.92 kg

DRUGS (2)
  1. FLUOXETINE 40MG PAR PHARM [Suspect]
     Active Substance: FLUOXETINE HYDROCHLORIDE
     Indication: DEPRESSION
  2. PROVIGIL [Concomitant]
     Active Substance: MODAFINIL

REACTIONS (2)
  - Oesophageal pain [None]
  - Dyspepsia [None]

NARRATIVE: CASE EVENT DATE: 20160219
